FAERS Safety Report 10767203 (Version 2)
Quarter: 2015Q1

REPORT INFORMATION
  Report Type: Spontaneous
  Country: JP (occurrence: JP)
  Receive Date: 20150205
  Receipt Date: 20150226
  Transmission Date: 20150721
  Serious: Yes (Death)
  Sender: FDA-Public Use
  Company Number: JP-SHIONOGI, INC-2014000506

PATIENT
  Age: 83 Year
  Sex: Male

DRUGS (3)
  1. FINIBAX [Suspect]
     Active Substance: DORIPENEM MONOHYDRATE
     Indication: PNEUMONIA
     Route: 065
  2. HYDROCORTISONE. [Suspect]
     Active Substance: HYDROCORTISONE
     Indication: ADRENAL DISORDER
     Route: 065
  3. FINIBAX [Suspect]
     Active Substance: DORIPENEM MONOHYDRATE
     Indication: STAPHYLOCOCCAL SEPSIS

REACTIONS (5)
  - Candida sepsis [None]
  - Candida pneumonia [None]
  - Superinfection [Fatal]
  - Multi-organ failure [None]
  - Systemic candida [Fatal]
